FAERS Safety Report 4657290-X (Version None)
Quarter: 2005Q2

REPORT INFORMATION
  Report Type: 
  Country: None (occurrence: None)
  Receive Date: 20050506
  Receipt Date: 20050421
  Transmission Date: 20051028
  Serious: Yes (Death, Other)
  Sender: FDA-Public Use
  Company Number: USA-2005-0019943

PATIENT
  Age: 41 Year
  Sex: Male

DRUGS (2)
  1. PALLADONE [Suspect]
  2. DIAZEPAM [Concomitant]

REACTIONS (4)
  - DRUG ABUSER [None]
  - INCORRECT ROUTE OF DRUG ADMINISTRATION [None]
  - RESPIRATORY DEPRESSION [None]
  - TOXICOLOGIC TEST ABNORMAL [None]
